FAERS Safety Report 16545263 (Version 1)
Quarter: 2019Q3

REPORT INFORMATION
  Report Type: Spontaneous
  Country: US (occurrence: US)
  Receive Date: 20190708
  Receipt Date: 20190708
  Transmission Date: 20191004
  Serious: Yes (Hospitalization)
  Sender: FDA-Public Use
  Company Number: None

PATIENT
  Age: 60 Year
  Sex: Female
  Weight: 52.2 kg

DRUGS (8)
  1. BENADRYL [Concomitant]
     Active Substance: DIPHENHYDRAMINE HYDROCHLORIDE
  2. PEPCID [Concomitant]
     Active Substance: FAMOTIDINE
  3. LACTOBACILLUS [Concomitant]
     Active Substance: LACTOBACILLUS ACIDOPHILUS
  4. PREDNISONE. [Concomitant]
     Active Substance: PREDNISONE
  5. CLONAZEPAM. [Concomitant]
     Active Substance: CLONAZEPAM
  6. SULFAMETH/TRIMETHAPRIM 800/160 MGTB [Suspect]
     Active Substance: SULFAMETHOXAZOLE\TRIMETHOPRIM
     Indication: SINUSITIS BACTERIAL
     Dosage: ?          QUANTITY:1 TABLET(S);?
     Route: 048
     Dates: start: 20190703, end: 20190703
  7. ACTIVELLA [Concomitant]
     Active Substance: ESTRADIOL\NORETHINDRONE ACETATE
  8. DOXYCYLINE [Concomitant]
     Active Substance: DOXYCYCLINE

REACTIONS (4)
  - Rash erythematous [None]
  - Septic shock [None]
  - Serum sickness [None]
  - Generalised oedema [None]

NARRATIVE: CASE EVENT DATE: 20190703
